FAERS Safety Report 23844235 (Version 1)
Quarter: 2024Q2

REPORT INFORMATION
  Report Type: Report from Study
  Country: ES (occurrence: ES)
  Receive Date: 20240510
  Receipt Date: 20240510
  Transmission Date: 20240716
  Serious: Yes (Disabling, Other)
  Sender: FDA-Public Use
  Company Number: ES-TEVA-VS-3167210

PATIENT
  Age: 87 Year
  Sex: Female

DRUGS (6)
  1. TERIPARATIDE [Suspect]
     Active Substance: TERIPARATIDE
     Indication: Osteoporosis
     Dosage: 20MCG/80MCL
     Route: 065
     Dates: start: 20240222
  2. PREMAX [Concomitant]
     Indication: Pain
     Dosage: TIME INTERVAL: 0.33333333 DAYS: START DATE: LONG TIME AGO
     Route: 065
  3. PREMAX [Concomitant]
     Indication: Pain
     Dosage: START DATE: LONG TIME AGO
     Route: 065
  4. DURFENTA [Concomitant]
     Indication: Pain
     Route: 062
     Dates: start: 2023
  5. DURFENTA [Concomitant]
     Indication: Pain
     Route: 062
     Dates: start: 2023
  6. DULOXETINE HYDROCHLORIDE [Concomitant]
     Active Substance: DULOXETINE HYDROCHLORIDE
     Indication: Anxiety
     Dosage: 1 IN MORNING, START DATE: LONG TIME AGO
     Route: 065

REACTIONS (5)
  - Arthralgia [Not Recovered/Not Resolved]
  - Back pain [Not Recovered/Not Resolved]
  - Product storage error [Unknown]
  - Joint noise [Not Recovered/Not Resolved]
  - Skin exfoliation [Not Recovered/Not Resolved]

NARRATIVE: CASE EVENT DATE: 20240222
